FAERS Safety Report 4911030-5 (Version None)
Quarter: 2006Q1

REPORT INFORMATION
  Report Type: 
  Country: None (occurrence: None)
  Receive Date: 20060209
  Receipt Date: 20060201
  Transmission Date: 20060701
  Serious: Yes (Hospitalization)
  Sender: FDA-Public Use
  Company Number: 2005139008

PATIENT
  Age: 53 Year
  Sex: Male
  Weight: 65 kg

DRUGS (3)
  1. CABERGOLINE [Suspect]
     Indication: PARKINSON'S DISEASE
     Dosage: 0.5 MG (0.5 MG, DAILY), ORAL
     Route: 048
     Dates: start: 20010623, end: 20010701
  2. SINEMET [Concomitant]
  3. AMANTADINE HCL [Concomitant]

REACTIONS (6)
  - HEPATOMEGALY [None]
  - JAUNDICE [None]
  - LYMPHADENOPATHY [None]
  - PNEUMONITIS [None]
  - POLYDIPSIA [None]
  - RASH MACULO-PAPULAR [None]
